FAERS Safety Report 23651571 (Version 1)
Quarter: 2024Q1

REPORT INFORMATION
  Report Type: Spontaneous
  Country: US (occurrence: US)
  Receive Date: 20240320
  Receipt Date: 20240320
  Transmission Date: 20240410
  Serious: No
  Sender: FDA-Public Use
  Company Number: US-BMS-IMIDS-REMS_SI-11070057

PATIENT
  Sex: Male

DRUGS (5)
  1. LENALIDOMIDE [Suspect]
     Active Substance: LENALIDOMIDE
     Indication: Product used for unknown indication
     Dosage: QUANTITY- 21?NDC NUMBER- 47781-0485-28?DISPENSE DAT 02-AUG-23
     Dates: start: 202308
  2. LENALIDOMIDE [Suspect]
     Active Substance: LENALIDOMIDE
     Indication: Product used for unknown indication
     Dosage: QUANTITY- 21?NDC NUMBER- 47781-0485-28
     Dates: start: 20230830
  3. LENALIDOMIDE [Suspect]
     Active Substance: LENALIDOMIDE
     Indication: Product used for unknown indication
     Dosage: QUANTITY- 21?NDC NUMBER- 47781-0485-28
     Dates: start: 20230925
  4. LENALIDOMIDE [Suspect]
     Active Substance: LENALIDOMIDE
     Indication: Product used for unknown indication
     Dosage: QUANTITY- 21?NDC NUMBER- 47781-0485-28
     Dates: start: 20231024
  5. LENALIDOMIDE [Suspect]
     Active Substance: LENALIDOMIDE
     Indication: Product used for unknown indication
     Dosage: QUANTITY- 21?NDC NUMBER- 47781-0485-28
     Dates: start: 20231121

REACTIONS (2)
  - Blood immunoglobulin M decreased [Unknown]
  - Off label use [Unknown]

NARRATIVE: CASE EVENT DATE: 20231205
